FAERS Safety Report 20367765 (Version 1)
Quarter: 2022Q1

REPORT INFORMATION
  Report Type: Spontaneous
  Country: PL (occurrence: PL)
  Receive Date: 20220124
  Receipt Date: 20220124
  Transmission Date: 20220423
  Serious: Yes (Death, Hospitalization, Other)
  Sender: FDA-Public Use
  Company Number: PL-Orion Corporation ORION PHARMA-OLAA2022-0001

PATIENT
  Age: 34 Year
  Sex: Male

DRUGS (4)
  1. OLANZAPINE [Suspect]
     Active Substance: OLANZAPINE
     Indication: Schizophrenia
     Dosage: 20 MILLIGRAM (DOSE INCREASED TO 20 MG ON TWO CONSECUTIVE DAYS)
     Route: 048
  2. OLANZAPINE [Suspect]
     Active Substance: OLANZAPINE
     Dosage: 10 MILLIGRAM
     Route: 048
  3. OLANZAPINE [Suspect]
     Active Substance: OLANZAPINE
     Dosage: 20 MILLIGRAM, ONCE A DAY (19TH DAY OF HOSPITALISATION)
     Route: 048
  4. OLANZAPINE [Suspect]
     Active Substance: OLANZAPINE
     Dosage: UNK
     Route: 048

REACTIONS (5)
  - Cardiac arrest [Fatal]
  - Pulmonary embolism [Fatal]
  - Schizophrenia [Unknown]
  - Intentional dose omission [Unknown]
  - Drug ineffective [Unknown]
